FAERS Safety Report 18563708 (Version 1)
Quarter: 2020Q4

REPORT INFORMATION
  Report Type: Spontaneous
  Country: JP (occurrence: JP)
  Receive Date: 20201201
  Receipt Date: 20201201
  Transmission Date: 20210114
  Serious: Yes (Other)
  Sender: FDA-Public Use
  Company Number: JP-GLAXOSMITHKLINE-JP2020233231

PATIENT
  Sex: Male

DRUGS (1)
  1. FLUTIDE [FLUTICASONE PROPIONATE] [Suspect]
     Active Substance: FLUTICASONE PROPIONATE
     Indication: COUGH VARIANT ASTHMA
     Dosage: 200 UG, BID
     Route: 055
     Dates: start: 20201124, end: 202011

REACTIONS (4)
  - Altered state of consciousness [Not Recovered/Not Resolved]
  - Dysphonia [Not Recovered/Not Resolved]
  - Pain in extremity [Recovered/Resolved]
  - Insomnia [Recovered/Resolved]

NARRATIVE: CASE EVENT DATE: 20201124
